FAERS Safety Report 21258202 (Version 1)
Quarter: 2022Q3

REPORT INFORMATION
  Report Type: Report from Study
  Country: JP (occurrence: JP)
  Receive Date: 20220826
  Receipt Date: 20220826
  Transmission Date: 20221027
  Serious: Yes (Other)
  Sender: FDA-Public Use
  Company Number: JP-MH-2022M1088780AA

PATIENT
  Sex: Male

DRUGS (3)
  1. CARBOPLATIN [Suspect]
     Active Substance: CARBOPLATIN
     Indication: Sarcomatoid carcinoma of the lung
     Dosage: 6 X AREA UNDER CURVE (AUC), DAY 1 IN A THREE-WEEK CYCLE
     Route: 065
  2. BEVACIZUMAB [Suspect]
     Active Substance: BEVACIZUMAB
     Indication: Sarcomatoid carcinoma of the lung
     Dosage: 15 MILLIGRAM/KILOGRAM, CYCLE, DAY 1 IN A THREE WEEK CYCLE
     Route: 065
  3. PACLITAXEL [Suspect]
     Active Substance: PACLITAXEL
     Indication: Sarcomatoid carcinoma of the lung
     Dosage: 200 MILLIGRAM/SQ. METER, CYCLE, DAY 1 IN A THREE-WEEK CYCLE
     Route: 065

REACTIONS (1)
  - Ileus [Unknown]
